FAERS Safety Report 13937070 (Version 3)
Quarter: 2020Q4

REPORT INFORMATION
  Report Type: Report from Study
  Country: US (occurrence: US)
  Receive Date: 20170905
  Receipt Date: 20201211
  Transmission Date: 20210113
  Serious: Yes (Hospitalization)
  Sender: FDA-Public Use
  Company Number: US-CELGENEUS-USA-20170807045

PATIENT
  Age: 73 Year
  Sex: Female
  Weight: 77.18 kg

DRUGS (22)
  1. REVLIMID [Suspect]
     Active Substance: LENALIDOMIDE
     Dosage: 15 MILLIGRAM
     Route: 048
     Dates: start: 20111215, end: 20120102
  2. VELCADE [Suspect]
     Active Substance: BORTEZOMIB
     Dosage: 1X WEEKLY, NO REST PERIOD DAY 1Q TO 7D, 1 WEEK OFF Q 14D
     Route: 041
     Dates: start: 20170222, end: 20170222
  3. DECADRON [Suspect]
     Active Substance: DEXAMETHASONE
     Dosage: 20 MILLIGRAM
     Route: 048
     Dates: start: 20111117, end: 20120202
  4. DECADRON [Suspect]
     Active Substance: DEXAMETHASONE
     Dosage: 8 MILLIGRAM
     Route: 048
     Dates: start: 20130401, end: 20130415
  5. REVLIMID [Suspect]
     Active Substance: LENALIDOMIDE
     Dosage: 2.5 MILLIGRAM
     Route: 048
     Dates: start: 20170426, end: 20170504
  6. VELCADE [Suspect]
     Active Substance: BORTEZOMIB
     Dosage: 1X WEEKLY, NO REST PERIOD DAY 1Q TO 7D, 1 WEEK OFF Q 14D
     Route: 041
     Dates: start: 20160914, end: 20170104
  7. DECADRON [Suspect]
     Active Substance: DEXAMETHASONE
     Dosage: 20 MILLIGRAM
     Route: 048
     Dates: start: 20170406, end: 20170422
  8. REVLIMID [Suspect]
     Active Substance: LENALIDOMIDE
     Dosage: 5 MILLIGRAM
     Route: 048
     Dates: start: 20130221, end: 20130304
  9. VELCADE [Suspect]
     Active Substance: BORTEZOMIB
     Indication: PRODUCT USED FOR UNKNOWN INDICATION
     Dosage: 1X WEEKLY, NO REST PERIOD DAY 1Q TO 7D
     Route: 041
     Dates: start: 20110519, end: 20111103
  10. REVLIMID [Suspect]
     Active Substance: LENALIDOMIDE
     Dosage: 7.5 MILLIGRAM
     Route: 048
     Dates: start: 20120710, end: 20130131
  11. VELCADE [Suspect]
     Active Substance: BORTEZOMIB
     Dosage: 1X WEEKLY, NO REST PERIOD DAY 1Q TO 7D, 1 WEEK OFF Q 14D
     Route: 041
     Dates: start: 20160601, end: 20160727
  12. DECADRON [Suspect]
     Active Substance: DEXAMETHASONE
     Indication: PLASMA CELL MYELOMA
     Route: 048
     Dates: start: 20110804, end: 20111110
  13. DECADRON [Suspect]
     Active Substance: DEXAMETHASONE
     Dosage: 20 MILLIGRAM
     Route: 048
     Dates: start: 20170628, end: 20170629
  14. REVLIMID [Suspect]
     Active Substance: LENALIDOMIDE
     Dosage: 5 MILLIGRAM
     Route: 048
     Dates: start: 20130327, end: 20130401
  15. THALOMID [Suspect]
     Active Substance: THALIDOMIDE
     Indication: PLASMA CELL MYELOMA
     Dosage: 200 MILLIGRAM
     Route: 048
     Dates: start: 20170514, end: 20170629
  16. DECADRON [Suspect]
     Active Substance: DEXAMETHASONE
     Dosage: 4 MILLIGRAM
     Route: 048
     Dates: start: 20170601, end: 20170627
  17. REVLIMID [Suspect]
     Active Substance: LENALIDOMIDE
     Indication: PLASMA CELL MYELOMA
     Dosage: 7.5 MILLIGRAM
     Route: 048
     Dates: start: 20110720, end: 20111103
  18. REVLIMID [Suspect]
     Active Substance: LENALIDOMIDE
     Dosage: 11.25 MILLIGRAM
     Route: 048
     Dates: start: 20111104, end: 20111214
  19. DECADRON [Suspect]
     Active Substance: DEXAMETHASONE
     Dosage: 20 MILLIGRAM
     Route: 048
     Dates: start: 20160310, end: 20170322
  20. REVLIMID [Suspect]
     Active Substance: LENALIDOMIDE
     Dosage: 5 MILLIGRAM
     Route: 048
     Dates: start: 20130426, end: 20130515
  21. REVLIMID [Suspect]
     Active Substance: LENALIDOMIDE
     Dosage: 5 MILLIGRAM
     Route: 048
     Dates: start: 20170406, end: 20170425
  22. VELCADE [Suspect]
     Active Substance: BORTEZOMIB
     Dosage: 1X WEEKLY, NO REST PERIOD DAY 1Q TO 7D
     Route: 041
     Dates: start: 20160310, end: 20160504

REACTIONS (2)
  - Urinary tract infection [Unknown]
  - Confusional state [Recovered/Resolved]

NARRATIVE: CASE EVENT DATE: 20170722
